FAERS Safety Report 13665543 (Version 1)
Quarter: 2017Q2

REPORT INFORMATION
  Report Type: Spontaneous
  Country: RS (occurrence: RS)
  Receive Date: 20170619
  Receipt Date: 20170619
  Transmission Date: 20170830
  Serious: Yes (Hospitalization, Other)
  Sender: FDA-Public Use
  Company Number: RS-BAYER-2017-112622

PATIENT
  Age: 65 Year
  Sex: Male

DRUGS (7)
  1. ASPIRIN PROTECT 300 MG [Suspect]
     Active Substance: ASPIRIN
     Indication: ANTIPLATELET THERAPY
     Dosage: 150 MG, UNK
  2. THIABENDAZOLE [Concomitant]
     Active Substance: THIABENDAZOLE
  3. ASPIRIN PROTECT 300 MG [Suspect]
     Active Substance: ASPIRIN
     Indication: ANTIPLATELET THERAPY
     Dosage: 300 MG, UNK
  4. CLOPIDOGREL [Concomitant]
     Active Substance: CLOPIDOGREL BISULFATE
     Dosage: 75 MG, UNK
  5. HEPARIN [Concomitant]
     Active Substance: HEPARIN SODIUM
     Indication: ANTICOAGULANT THERAPY
  6. ASPIRIN PROTECT 300 MG [Suspect]
     Active Substance: ASPIRIN
     Indication: ANTIPLATELET THERAPY
     Dosage: UNK
  7. CLOPIDOGREL [Concomitant]
     Active Substance: CLOPIDOGREL BISULFATE
     Dosage: 150 MG, UNK

REACTIONS (9)
  - Faeces discoloured [None]
  - Gastrointestinal haemorrhage [None]
  - Haemoglobin decreased [None]
  - Anaemia [None]
  - Cardiac failure [None]
  - Gastritis erosive [None]
  - Duodenal ulcer [None]
  - Haemodynamic instability [None]
  - Gastric ulcer [None]
